FAERS Safety Report 21581602 (Version 4)
Quarter: 2022Q4

REPORT INFORMATION
  Report Type: Spontaneous
  Country: CA (occurrence: CA)
  Receive Date: 20221111
  Receipt Date: 20221230
  Transmission Date: 20230113
  Serious: Yes (Hospitalization, Other)
  Sender: FDA-Public Use
  Company Number: CA-CELLTRION INC.-2022CA018975

PATIENT

DRUGS (5)
  1. INFLECTRA [Suspect]
     Active Substance: INFLIXIMAB-DYYB
     Indication: Crohn^s disease
     Dosage: 500 MG, Q 0,2,6 THEN EVERY 8 WEEKS
     Route: 042
     Dates: start: 20221020
  2. INFLECTRA [Suspect]
     Active Substance: INFLIXIMAB-DYYB
     Dosage: 500 MG, Q 0,2,6 THEN EVERY 8 WEEKS
     Route: 042
     Dates: start: 20221020, end: 20221202
  3. INFLECTRA [Suspect]
     Active Substance: INFLIXIMAB-DYYB
     Dosage: 500 MG, Q 0,2,6 THEN EVERY 8 WEEKS
     Route: 042
     Dates: start: 20221104
  4. INFLECTRA [Suspect]
     Active Substance: INFLIXIMAB-DYYB
     Dosage: 500 MG, Q 0,2,6 THEN EVERY 8 WEEKS
     Route: 042
     Dates: start: 20221202
  5. ENTOCORT [Concomitant]
     Active Substance: BUDESONIDE
     Dosage: 1 DF UNKNOWN DOSE
     Route: 065

REACTIONS (25)
  - Abdominal pain [Recovering/Resolving]
  - Condition aggravated [Recovering/Resolving]
  - Hypersensitivity [Recovered/Resolved]
  - Diarrhoea [Recovered/Resolved]
  - Chest pain [Recovered/Resolved]
  - Pain in extremity [Recovered/Resolved]
  - Back pain [Recovered/Resolved]
  - Blood pressure increased [Recovered/Resolved]
  - Body temperature increased [Recovered/Resolved]
  - Chills [Recovered/Resolved]
  - Tremor [Recovered/Resolved]
  - Aphthous ulcer [Unknown]
  - Blood pressure increased [Unknown]
  - White coat hypertension [Unknown]
  - Hot flush [Recovered/Resolved]
  - Nausea [Recovered/Resolved]
  - Urticaria [Recovering/Resolving]
  - Back pain [Recovered/Resolved]
  - Erythema [Recovered/Resolved]
  - Pruritus [Recovered/Resolved]
  - Rash macular [Recovered/Resolved]
  - Throat irritation [Recovered/Resolved]
  - Cough [Recovered/Resolved]
  - Anal fissure [Unknown]
  - Hypersensitivity [Not Recovered/Not Resolved]

NARRATIVE: CASE EVENT DATE: 20220101
